FAERS Safety Report 21043146 (Version 2)
Quarter: 2022Q3

REPORT INFORMATION
  Report Type: Report from Study
  Country: US (occurrence: US)
  Receive Date: 20220705
  Receipt Date: 20220713
  Transmission Date: 20221027
  Serious: No
  Sender: FDA-Public Use
  Company Number: US-DSJP-DSU-2022-123423AA

PATIENT
  Age: 25 Year
  Sex: Male

DRUGS (1)
  1. PEXIDARTINIB [Suspect]
     Active Substance: PEXIDARTINIB
     Indication: Giant cell tumour of tendon sheath
     Dosage: 400 MG, BID
     Route: 048
     Dates: start: 20220623

REACTIONS (8)
  - Pruritus [Recovering/Resolving]
  - Paraesthesia [Recovering/Resolving]
  - Dry mouth [Recovering/Resolving]
  - Taste disorder [Recovering/Resolving]
  - Memory impairment [Recovering/Resolving]
  - Product dose omission in error [Unknown]
  - Laboratory test abnormal [Not Recovered/Not Resolved]
  - Alanine aminotransferase abnormal [Not Recovered/Not Resolved]

NARRATIVE: CASE EVENT DATE: 20220601
